FAERS Safety Report 9284128 (Version 2)
Quarter: 2013Q2

REPORT INFORMATION
  Report Type: Spontaneous
  Country: US (occurrence: US)
  Receive Date: 20130510
  Receipt Date: 20130627
  Transmission Date: 20140414
  Serious: No
  Sender: FDA-Public Use
  Company Number: US-009507513-1305USA004267

PATIENT
  Age: 35 Year
  Sex: Female
  Weight: 68.27 kg

DRUGS (1)
  1. SAPHRIS [Suspect]
     Indication: SCHIZOAFFECTIVE DISORDER
     Dosage: 5 MG, BID
     Route: 048
     Dates: start: 20130419, end: 20130429

REACTIONS (2)
  - Hypoaesthesia [Recovered/Resolved]
  - Product quality issue [Unknown]
